FAERS Safety Report 6825348-2 (Version None)
Quarter: 2010Q3

REPORT INFORMATION
  Report Type: 
  Country: None (occurrence: None)
  Receive Date: 20100708
  Receipt Date: 20070308
  Transmission Date: 20110219
  Serious: No
  Sender: FDA-Public Use
  Company Number: US-PFIZER INC-2007001814

PATIENT
  Sex: Female
  Weight: 79.38 kg

DRUGS (4)
  1. CHANTIX [Suspect]
     Indication: SMOKING CESSATION THERAPY
     Dates: start: 20061229
  2. TOPROL-XL [Concomitant]
  3. ZETIA [Concomitant]
  4. XANAX [Concomitant]

REACTIONS (8)
  - ANGER [None]
  - FEELING HOT [None]
  - FLUSHING [None]
  - INITIAL INSOMNIA [None]
  - IRRITABILITY [None]
  - MIDDLE INSOMNIA [None]
  - MUSCULAR WEAKNESS [None]
  - NIGHTMARE [None]
